FAERS Safety Report 10923982 (Version 2)
Quarter: 2015Q3

REPORT INFORMATION
  Report Type: Spontaneous
  Country: US (occurrence: None)
  Receive Date: 20150129
  Receipt Date: 20150629
  Transmission Date: 20151125
  Serious: No
  Sender: FDA-Public Use
  Company Number: A-US2014-107101

PATIENT
  Age: 52 Year
  Sex: Female

DRUGS (12)
  1. OPSUMIT [Suspect]
     Active Substance: MACITENTAN
     Indication: PULMONARY ARTERIAL HYPERTENSION
     Route: 048
     Dates: start: 20140924, end: 20141130
  2. LANSOPRAZOLE. [Concomitant]
     Active Substance: LANSOPRAZOLE
  3. CARISOPRODOL. [Concomitant]
     Active Substance: CARISOPRODOL
  4. CILOSTAZOL. [Concomitant]
     Active Substance: CILOSTAZOL
  5. BUMETANIDE. [Concomitant]
     Active Substance: BUMETANIDE
  6. GABAPENTIN. [Concomitant]
     Active Substance: GABAPENTIN
  7. PHENTERMINE. [Concomitant]
     Active Substance: PHENTERMINE
  8. PANTOPRAZOLE [Concomitant]
     Active Substance: PANTOPRAZOLE SODIUM
  9. NIFEDIPINE. [Concomitant]
     Active Substance: NIFEDIPINE
  10. SPIRONOLACTONE. [Concomitant]
     Active Substance: SPIRONOLACTONE
  11. HYDROXYCHLOROQUINE [Concomitant]
     Active Substance: HYDROXYCHLOROQUINE
  12. MONTELUKAST [Concomitant]
     Active Substance: MONTELUKAST SODIUM

REACTIONS (3)
  - Constipation [None]
  - Headache [None]
  - Insomnia [None]

NARRATIVE: CASE EVENT DATE: 20140924
